FAERS Safety Report 6489991-5 (Version None)
Quarter: 2009Q4

REPORT INFORMATION
  Report Type: 
  Country: None (occurrence: None)
  Receive Date: 20091211
  Receipt Date: 20091202
  Transmission Date: 20100525
  Serious: Yes (Hospitalization, Other)
  Sender: FDA-Public Use
  Company Number: CA-ABBOTT-09P-028-0612433-00

PATIENT
  Sex: Female
  Weight: 83.082 kg

DRUGS (1)
  1. HUMIRA [Suspect]
     Indication: CROHN'S DISEASE
     Route: 058
     Dates: start: 20091126

REACTIONS (3)
  - ABDOMINAL PAIN UPPER [None]
  - PANCREATIC ENZYMES INCREASED [None]
  - PANCREATITIS [None]
